FAERS Safety Report 4764167-8 (Version None)
Quarter: 2005Q3

REPORT INFORMATION
  Report Type: 
  Country: None (occurrence: None)
  Receive Date: 20050901
  Receipt Date: 20050630
  Transmission Date: 20060218
  Serious: No
  Sender: FDA-Public Use
  Company Number: 200510876BWH

PATIENT
  Age: 26 Year
  Sex: Male

DRUGS (1)
  1. LEVITRA [Suspect]
     Indication: ERECTILE DYSFUNCTION
     Dosage: 5 MG TOTAL DAILY ORAL
     Route: 048
     Dates: start: 20050101, end: 20050421

REACTIONS (2)
  - PAINFUL ERECTION [None]
  - PENILE PAIN [None]
